FAERS Safety Report 10924802 (Version 1)
Quarter: 2015Q1

REPORT INFORMATION
  Report Type: Spontaneous
  Country: US (occurrence: None)
  Receive Date: 20150129
  Receipt Date: 20150129
  Transmission Date: 20150721
  Serious: Yes (Other)
  Sender: FDA-Public Use
  Company Number: 2014010795

PATIENT
  Age: 9 Year
  Sex: Male
  Weight: 38.1 kg

DRUGS (2)
  1. VIMPAT [Suspect]
     Active Substance: LACOSAMIDE
     Indication: EPILEPSY
     Route: 048
     Dates: start: 20140830, end: 2014
  2. KEPPRA [Suspect]
     Active Substance: LEVETIRACETAM
     Indication: EPILEPSY
     Dosage: 1 IN AM, 2 IN PM,
     Route: 048
     Dates: start: 2014, end: 2014

REACTIONS (4)
  - Generalised tonic-clonic seizure [None]
  - Petit mal epilepsy [None]
  - Seizure [None]
  - Off label use [None]

NARRATIVE: CASE EVENT DATE: 2014
